FAERS Safety Report 12752856 (Version 1)
Quarter: 2016Q3

REPORT INFORMATION
  Report Type: Spontaneous
  Country: US (occurrence: US)
  Receive Date: 20160916
  Receipt Date: 20160916
  Transmission Date: 20161109
  Serious: Yes (Hospitalization)
  Sender: FDA-Public Use
  Company Number: None

PATIENT
  Age: 78 Year
  Sex: Male
  Weight: 69.4 kg

DRUGS (1)
  1. ABRAXANE [Suspect]
     Active Substance: PACLITAXEL
     Route: 042
     Dates: start: 20160713

REACTIONS (6)
  - Presyncope [None]
  - Incontinence [None]
  - Hypotension [None]
  - Asthenia [None]
  - Fall [None]
  - Acute kidney injury [None]

NARRATIVE: CASE EVENT DATE: 20160913
